FAERS Safety Report 10378414 (Version 1)
Quarter: 2014Q1

REPORT INFORMATION
  Report Type: Spontaneous
  Country: US (occurrence: None)
  Receive Date: 20140306
  Receipt Date: 20140306
  Transmission Date: 20141002
  Serious: Yes (Other)
  Sender: FDA-Public Use
  Company Number: 163-21880-13022926

PATIENT
  Age: 84 Year
  Sex: Female

DRUGS (2)
  1. REVLIMID (LENALIDOMIDE) (CAPSULES) [Suspect]
     Indication: PLASMA CELL MYELOMA
     Dates: start: 201211
  2. DEXAMETHASONE [Concomitant]

REACTIONS (5)
  - White blood cell count decreased [None]
  - Disorientation [None]
  - Haemoglobin decreased [None]
  - Neuropathy peripheral [None]
  - Dizziness [None]
